FAERS Safety Report 24122717 (Version 1)
Quarter: 2024Q3

REPORT INFORMATION
  Report Type: Spontaneous
  Country: US (occurrence: US)
  Receive Date: 20240723
  Receipt Date: 20240723
  Transmission Date: 20241017
  Serious: No
  Sender: EMD SERONO INC
  Company Number: US-Merck Healthcare KGaA-2024038223

PATIENT
  Age: 46 Year
  Sex: Female

DRUGS (2)
  1. MAVENCLAD [Suspect]
     Active Substance: CLADRIBINE
     Indication: Multiple sclerosis
     Dosage: YEAR ONE MONTH ONE CYCLE
     Dates: start: 20240327
  2. MAVENCLAD [Suspect]
     Active Substance: CLADRIBINE
     Dosage: YEAR ONE MONTH TWO CYCLE
     Dates: start: 20240422

REACTIONS (3)
  - Oropharyngeal pain [Unknown]
  - Pharyngeal inflammation [Unknown]
  - Throat irritation [Unknown]
